FAERS Safety Report 15066818 (Version 1)
Quarter: 2018Q2

REPORT INFORMATION
  Report Type: Report from Study
  Country: DE (occurrence: DE)
  Receive Date: 20180626
  Receipt Date: 20180626
  Transmission Date: 20180711
  Serious: Yes (Other)
  Sender: FDA-Public Use
  Company Number: PHHY2018DE021904

PATIENT
  Age: 75 Year
  Sex: Female

DRUGS (2)
  1. MEKINIST [Suspect]
     Active Substance: TRAMETINIB DIMETHYL SULFOXIDE
     Indication: MALIGNANT MELANOMA
     Dosage: UNK UNK, QD
     Route: 065
     Dates: start: 201709
  2. TRAMETINIB [Suspect]
     Active Substance: TRAMETINIB
     Indication: MALIGNANT MELANOMA
     Dosage: UNK UNK, QD
     Route: 065
     Dates: start: 201709

REACTIONS (9)
  - Haemorrhage [Unknown]
  - Burning sensation [Unknown]
  - Peripheral swelling [Unknown]
  - Gastrointestinal disorder [Unknown]
  - Chills [Unknown]
  - Pyrexia [Unknown]
  - Nausea [Unknown]
  - Joint swelling [Unknown]
  - Urticaria [Unknown]
